FAERS Safety Report 7071206-0 (Version None)
Quarter: 2010Q4

REPORT INFORMATION
  Report Type: 
  Country: None (occurrence: None)
  Receive Date: 20101027
  Receipt Date: 20101027
  Transmission Date: 20110411
  Serious: Yes (Hospitalization)
  Sender: FDA-Public Use
  Company Number: None

PATIENT
  Sex: Male
  Weight: 70.5 kg

DRUGS (7)
  1. CYCLOPHOSPHAMIDE [Suspect]
     Dosage: 1790 MG
  2. CYTARABINE [Suspect]
     Dosage: 1072 MG
  3. DEXAMETHASONE [Suspect]
     Dosage: 280 MG
  4. DOXORUBICIN HYDROCHLORIDE [Suspect]
     Dosage: 135 MG
  5. METHOTREXATE [Suspect]
     Dosage: 45 MG
  6. THIOGUANINE [Suspect]
     Dosage: 600 MG
  7. VINCRISTINE SULFATE [Suspect]
     Dosage: 6 MG

REACTIONS (4)
  - APHASIA [None]
  - DYSARTHRIA [None]
  - HEADACHE [None]
  - NEUTROPENIA [None]
